FAERS Safety Report 23724212 (Version 3)
Quarter: 2024Q2

REPORT INFORMATION
  Report Type: Spontaneous
  Country: BR (occurrence: BR)
  Receive Date: 20240409
  Receipt Date: 20240624
  Transmission Date: 20240715
  Serious: Yes (Hospitalization, Other)
  Sender: FDA-Public Use
  Company Number: BR-SA-SAC20240405000953

PATIENT

DRUGS (1)
  1. LARONIDASE [Suspect]
     Active Substance: LARONIDASE
     Indication: Mucopolysaccharidosis I
     Dosage: UNK UNK, QW
     Route: 041

REACTIONS (7)
  - Hydrocephalus [Recovering/Resolving]
  - Intracranial pressure increased [Unknown]
  - Upper airway obstruction [Unknown]
  - Spinal cord compression [Unknown]
  - Musculoskeletal deformity [Unknown]
  - Posture abnormal [Unknown]
  - Tracheostomy [Recovering/Resolving]
